FAERS Safety Report 4415544-6 (Version None)
Quarter: 2004Q2

REPORT INFORMATION
  Report Type: 
  Country: None (occurrence: None)
  Receive Date: 20040621
  Receipt Date: 20031201
  Transmission Date: 20050107
  Serious: Yes (Death)
  Sender: FDA-Public Use
  Company Number: USA-2003-0011732

PATIENT
  Age: 27 Year
  Sex: Female
  Weight: 77.6 kg

DRUGS (7)
  1. OXYCODONE HCL [Suspect]
  2. HYDROCODONE BITARTRATE (SIMILAR TO IND 59,175) (HYDROCODONE BITARTRATE [Suspect]
  3. HEROIN (DIAMORPHINE) [Suspect]
  4. ALCOHOL (ETHANOL) [Suspect]
  5. ACETAMINOPHEN [Suspect]
  6. NICOTINE [Suspect]
  7. CAFFEINE (CAFFEINE) [Suspect]

REACTIONS (2)
  - ACCIDENTAL OVERDOSE [None]
  - MULTIPLE DRUG OVERDOSE [None]
